FAERS Safety Report 5723952-6 (Version None)
Quarter: 2008Q2

REPORT INFORMATION
  Report Type: 
  Country: None (occurrence: None)
  Receive Date: 20080430
  Receipt Date: 20080425
  Transmission Date: 20081010
  Serious: Yes (Death, Hospitalization)
  Sender: FDA-Public Use
  Company Number: US-SANOFI-SYNTHELABO-F01200800695

PATIENT
  Sex: Male

DRUGS (4)
  1. CYTARABINE [Suspect]
     Dosage: UNK
     Route: 041
     Dates: start: 20080301, end: 20080301
  2. FLUDARABINE PHOSPHATE [Suspect]
     Dosage: UNK
     Route: 041
     Dates: start: 20080301, end: 20080301
  3. RITUXIMAB [Suspect]
     Dosage: UNK
     Route: 041
     Dates: start: 20080301, end: 20080301
  4. OXALIPLATIN [Suspect]
     Indication: LEUKAEMIA
     Dosage: UNK
     Route: 041
     Dates: start: 20080301, end: 20080301

REACTIONS (1)
  - DEATH [None]
